FAERS Safety Report 17268924 (Version 1)
Quarter: 2020Q1

REPORT INFORMATION
  Report Type: Report from Study
  Country: RU (occurrence: RU)
  Receive Date: 20200114
  Receipt Date: 20200114
  Transmission Date: 20200409
  Serious: Yes (Life-Threatening, Other)
  Sender: FDA-Public Use
  Company Number: RU-ASTRAZENECA-2020SE05007

PATIENT
  Age: 62 Year
  Sex: Male
  Weight: 93.3 kg

DRUGS (5)
  1. BRILINTA [Suspect]
     Active Substance: TICAGRELOR
     Indication: MYOCARDIAL INFARCTION
     Route: 048
  2. EITHER NITROGLYCERIN [Concomitant]
  3. INSULINES [Concomitant]
  4. CAPTOPRIL. [Concomitant]
     Active Substance: CAPTOPRIL
  5. ACECARDOL [Concomitant]
     Active Substance: ASPIRIN

REACTIONS (7)
  - Gait disturbance [Unknown]
  - Apparent death [Unknown]
  - Weight increased [Unknown]
  - Dyspnoea [Unknown]
  - Heart rate increased [Recovered/Resolved]
  - Pulmonary oedema [Unknown]
  - Blood pressure increased [Recovered/Resolved]
